FAERS Safety Report 7747281-4 (Version None)
Quarter: 2011Q3

REPORT INFORMATION
  Report Type: 
  Country: None (occurrence: None)
  Receive Date: 20110909
  Receipt Date: 20110825
  Transmission Date: 20111222
  Serious: Yes (Other)
  Sender: FDA-Public Use
  Company Number: AUR-APL-2011-04862

PATIENT
  Age: 40 Year
  Sex: Male

DRUGS (1)
  1. RISPERIDONE (RISPERIDONE) [Suspect]
     Indication: SCHIZOPHRENIA

REACTIONS (1)
  - MEIGE'S SYNDROME [None]
